FAERS Safety Report 23380291 (Version 1)
Quarter: 2024Q1

REPORT INFORMATION
  Report Type: Spontaneous
  Country: GR (occurrence: GR)
  Receive Date: 20240109
  Receipt Date: 20240109
  Transmission Date: 20240410
  Serious: Yes (Other)
  Sender: FDA-Public Use
  Company Number: GR-CELLTRION INC.-2024GR000298

PATIENT

DRUGS (2)
  1. INFLIXIMAB [Suspect]
     Active Substance: INFLIXIMAB
     Indication: Crohn^s disease
     Dosage: STARTED IN 2020-2021
     Route: 041
     Dates: end: 2023
  2. INFLIXIMAB [Suspect]
     Active Substance: INFLIXIMAB
     Indication: Crohn^s disease
     Dosage: 1 DOSAGE FORM, EVERY 2 WEEKS
     Route: 058
     Dates: start: 2023

REACTIONS (2)
  - Crohn^s disease [Unknown]
  - Maternal exposure during pregnancy [Unknown]
